FAERS Safety Report 8581890 (Version 2)
Quarter: 2013Q2

REPORT INFORMATION
  Report Type: Spontaneous
  Country: US (occurrence: US)
  Receive Date: 20120528
  Receipt Date: 20130607
  Transmission Date: 20140414
  Serious: Yes (Hospitalization, Other)
  Sender: FDA-Public Use
  Company Number: US-AMGEN-USASP2012032045

PATIENT
  Age: 69 Year
  Sex: Female

DRUGS (1)
  1. ENBREL [Suspect]
     Indication: PSORIATIC ARTHROPATHY
     Dosage: 50 MG, WEEKLY
     Route: 058
     Dates: start: 20030801

REACTIONS (23)
  - Vomiting [Recovered/Resolved]
  - Asthenia [Recovered/Resolved]
  - Fatigue [Recovered/Resolved]
  - Somnolence [Recovered/Resolved]
  - Burning sensation [Recovered/Resolved]
  - Blood pressure decreased [Recovered/Resolved]
  - Heart rate decreased [Recovered/Resolved]
  - Dehydration [Recovered/Resolved]
  - Haematemesis [Recovered/Resolved]
  - Arthropod bite [Recovered/Resolved]
  - Atrial fibrillation [Not Recovered/Not Resolved]
  - Cerebrovascular accident [Recovered/Resolved]
  - Pruritus [Recovered/Resolved]
  - Gallbladder operation [Recovered/Resolved]
  - Ill-defined disorder [Recovered/Resolved]
  - Walking aid user [Recovered/Resolved]
  - Visual impairment [Recovered/Resolved]
  - Psoriatic arthropathy [Not Recovered/Not Resolved]
  - Dysarthria [Recovered/Resolved]
  - Speech disorder [Recovered/Resolved]
  - Musculoskeletal discomfort [Recovered/Resolved]
  - Fall [Unknown]
  - Arthralgia [Not Recovered/Not Resolved]
